FAERS Safety Report 19508416 (Version 2)
Quarter: 2021Q3

REPORT INFORMATION
  Report Type: Report from Study
  Country: US (occurrence: US)
  Receive Date: 20210708
  Receipt Date: 20210714
  Transmission Date: 20211014
  Serious: Yes (Other)
  Sender: FDA-Public Use
  Company Number: US-MYLANLABS-2021M1039147

PATIENT
  Age: 85 Year
  Sex: Male

DRUGS (1)
  1. YUPELRI [Suspect]
     Active Substance: REVEFENACIN
     Indication: CHRONIC OBSTRUCTIVE PULMONARY DISEASE
     Dosage: 175 MICROGRAM, QD (175MCG/3ML, QD)
     Route: 055

REACTIONS (3)
  - Pollakiuria [Unknown]
  - Urinary retention [Unknown]
  - Insomnia [Unknown]
